FAERS Safety Report 9201866 (Version 1)
Quarter: 2013Q2

REPORT INFORMATION
  Report Type: Spontaneous
  Country: IT (occurrence: IT)
  Receive Date: 20130401
  Receipt Date: 20130401
  Transmission Date: 20140414
  Serious: Yes (Hospitalization)
  Sender: FDA-Public Use
  Company Number: IT-ROCHE-1207137

PATIENT
  Age: 45 Year
  Sex: Male

DRUGS (1)
  1. ROCEFIN [Suspect]
     Indication: INFLUENZA
     Route: 030
     Dates: start: 20130111, end: 20130111

REACTIONS (2)
  - Hypersensitivity [Unknown]
  - Anal abscess [Unknown]
